FAERS Safety Report 25134175 (Version 1)
Quarter: 2025Q1

REPORT INFORMATION
  Report Type: Report from Study
  Country: US (occurrence: US)
  Receive Date: 20250328
  Receipt Date: 20250328
  Transmission Date: 20250409
  Serious: Yes (Other)
  Sender: SUNOVION
  Company Number: US-SMPA-2025SPA003585

PATIENT

DRUGS (9)
  1. ORGOVYX [Suspect]
     Active Substance: RELUGOLIX
     Indication: Prostate cancer
     Dosage: 120 MG, QD
     Route: 048
  2. ALLOPURINOL [Concomitant]
     Active Substance: ALLOPURINOL
     Route: 065
  3. AMLODIPINE BESYLATE [Concomitant]
     Active Substance: AMLODIPINE BESYLATE
     Route: 065
  4. ASPIRIN [Concomitant]
     Active Substance: ASPIRIN
     Route: 065
  5. TAMSULOSIN [Concomitant]
     Active Substance: TAMSULOSIN
     Route: 065
  6. ATORVASTATIN CALCIUM [Concomitant]
     Active Substance: ATORVASTATIN CALCIUM
     Route: 065
  7. BISOPROLOL FUMARATE [Concomitant]
     Active Substance: BISOPROLOL FUMARATE
     Route: 065
  8. DIAZEPAM [Concomitant]
     Active Substance: DIAZEPAM
     Route: 065
  9. PREDNISONE [Concomitant]
     Active Substance: PREDNISONE
     Route: 065

REACTIONS (2)
  - Prostatectomy [Unknown]
  - Therapy interrupted [Unknown]

NARRATIVE: CASE EVENT DATE: 20250317
